FAERS Safety Report 8949779 (Version 2)
Quarter: 2013Q1

REPORT INFORMATION
  Report Type: Spontaneous
  Country: US (occurrence: US)
  Receive Date: 20121206
  Receipt Date: 20130110
  Transmission Date: 20140127
  Serious: No
  Sender: FDA-Public Use
  Company Number: US-009507513-1212USA002216

PATIENT
  Age: 70 Year
  Sex: Female
  Weight: 88.89 kg

DRUGS (5)
  1. CLARITIN [Suspect]
     Indication: HYPERSENSITIVITY
     Dosage: 10 MG, ONCE
     Route: 048
     Dates: start: 20121126
  2. CLARITIN [Suspect]
     Indication: MEDICAL OBSERVATION
     Dosage: 10 MG, ONCE
     Route: 048
     Dates: start: 20121127
  3. CLARITIN [Suspect]
     Indication: EAR PRURITUS
  4. FELODIPINE [Concomitant]
     Indication: HYPERTENSION
     Dosage: 5 MG, UNKNOWN
  5. CLONIDINE [Concomitant]
     Indication: HYPERTENSION
     Dosage: 1 MG, UNKNOWN

REACTIONS (3)
  - Blood pressure increased [Unknown]
  - Palpitations [Recovered/Resolved]
  - Overdose [Unknown]
